FAERS Safety Report 16208060 (Version 1)
Quarter: 2019Q2

REPORT INFORMATION
  Report Type: Spontaneous
  Country: FR (occurrence: FR)
  Receive Date: 20190417
  Receipt Date: 20190417
  Transmission Date: 20190711
  Serious: Yes (Other)
  Sender: FDA-Public Use
  Company Number: FR-PFIZER INC-2019161207

PATIENT
  Age: 20 Year
  Sex: Male

DRUGS (6)
  1. IMPORTAL [Interacting]
     Active Substance: LACTITOL
     Indication: CONSTIPATION
     Dosage: 1 DF, 1X/DAY
     Route: 048
     Dates: start: 20190315, end: 20190318
  2. IBUPROFEN. [Suspect]
     Active Substance: IBUPROFEN
     Indication: GAIT DISTURBANCE
     Dosage: 1200 MG, 1X/DAY
     Route: 048
     Dates: start: 20190315, end: 20190318
  3. PIVALONE (TIXOCORTOL PIVALATE) [Interacting]
     Active Substance: TIXOCORTOL PIVALATE
     Indication: RHINORRHOEA
     Dosage: 3 DF, 1X/DAY
     Route: 055
     Dates: start: 20190315, end: 20190318
  4. FYCOMPA [Interacting]
     Active Substance: PERAMPANEL
     Indication: EPILEPSY
     Dosage: 6 MG, 1X/DAY
     Route: 048
  5. OMEPRAZOLE. [Interacting]
     Active Substance: OMEPRAZOLE
     Indication: PROPHYLAXIS AGAINST GASTROINTESTINAL ULCER
     Dosage: 20 MG, 1X/DAY
     Route: 048
     Dates: start: 20190315, end: 20190318
  6. LAMICTAL [Interacting]
     Active Substance: LAMOTRIGINE
     Indication: EPILEPSY
     Dosage: 350 MG, UNK
     Route: 048

REACTIONS (3)
  - Drug ineffective [Recovered/Resolved]
  - Seizure [Recovered/Resolved]
  - Drug interaction [Unknown]

NARRATIVE: CASE EVENT DATE: 20190318
